FAERS Safety Report 11199346 (Version 1)
Quarter: 2015Q2

REPORT INFORMATION
  Report Type: Spontaneous
  Country: NL (occurrence: None)
  Receive Date: 20150616
  Receipt Date: 20150616
  Transmission Date: 20150821
  Serious: Yes (Other)
  Sender: FDA-Public Use
  Company Number: NL-2015VAL000379

PATIENT
  Age: 54 Year
  Sex: Female

DRUGS (5)
  1. CARBAMAZEPINE. [Suspect]
     Active Substance: CARBAMAZEPINE
     Indication: EPILEPSY
  2. CLONAZEPAM (CLONAZEPAM) [Suspect]
     Active Substance: CLONAZEPAM
     Indication: EPILEPSY
  3. RIFAMPICIN (RIFAMPICIN) [Suspect]
     Active Substance: RIFAMPIN
     Indication: PRODUCT USED FOR UNKNOWN INDICATION
  4. VALPROIC ACID (VALPROIC ACID) [Suspect]
     Active Substance: VALPROIC ACID
     Indication: EPILEPSY
  5. FLUCLOXACILLIN (FLUCLOXACILLIN) [Suspect]
     Active Substance: FLUCLOXACILLIN
     Indication: PRODUCT USED FOR UNKNOWN INDICATION

REACTIONS (2)
  - Drug interaction [None]
  - Seizure [None]
